FAERS Safety Report 5452238-2 (Version None)
Quarter: 2007Q3

REPORT INFORMATION
  Report Type: 
  Country: None (occurrence: None)
  Receive Date: 20070912
  Receipt Date: 20070912
  Transmission Date: 20080115
  Serious: No
  Sender: FDA-Public Use
  Company Number: None

PATIENT
  Sex: Female
  Weight: 86.18 kg

DRUGS (2)
  1. TAXOL [Suspect]
     Dosage: 266 MG
  2. CARBOPLATIN [Suspect]
     Dosage: 555 MG

REACTIONS (1)
  - NEUTROPHIL COUNT DECREASED [None]
